FAERS Safety Report 24770571 (Version 1)
Quarter: 2024Q4

REPORT INFORMATION
  Report Type: Report from Study
  Country: ZA (occurrence: ZA)
  Receive Date: 20241224
  Receipt Date: 20241224
  Transmission Date: 20250115
  Serious: Yes (Death)
  Sender: REGENERON
  Company Number: ZA-BAYER-2024A179247

PATIENT
  Sex: Female

DRUGS (1)
  1. EYLEA [Suspect]
     Active Substance: AFLIBERCEPT
     Indication: Neovascular age-related macular degeneration
     Dosage: 1 X VIAL, LEFT EYE, 40 MG/ML, SOLUTION FOR INJECTION
     Dates: start: 20221214

REACTIONS (2)
  - Death [Fatal]
  - Illness [Unknown]
